FAERS Safety Report 18755810 (Version 1)
Quarter: 2021Q1

REPORT INFORMATION
  Report Type: Spontaneous
  Country: US (occurrence: US)
  Receive Date: 20210119
  Receipt Date: 20210119
  Transmission Date: 20210419
  Serious: Yes (Hospitalization, Disabling)
  Sender: FDA-Public Use
  Company Number: US-MYLANLABS-2021M1001687

PATIENT
  Age: 77 Year
  Sex: Male

DRUGS (1)
  1. DIPHENHYDRAMINE. [Suspect]
     Active Substance: DIPHENHYDRAMINE
     Indication: INSOMNIA
     Dosage: THE MAN HAD BEEN TAKING...
     Route: 065

REACTIONS (4)
  - Off label use [Unknown]
  - Dementia [Not Recovered/Not Resolved]
  - Urinary retention [Recovered/Resolved]
  - Intentional product misuse [Unknown]
